FAERS Safety Report 18481938 (Version 1)
Quarter: 2020Q4

REPORT INFORMATION
  Report Type: Spontaneous
  Country: SE (occurrence: SE)
  Receive Date: 20201109
  Receipt Date: 20201109
  Transmission Date: 20210114
  Serious: Yes (Other)
  Sender: FDA-Public Use
  Company Number: SE-B.I. PHARMACEUTICALS,INC./RIDGEFIELD-2020-BI-059118

PATIENT
  Age: 59 Year
  Sex: Male

DRUGS (1)
  1. PRADAXA [Suspect]
     Active Substance: DABIGATRAN ETEXILATE MESYLATE
     Indication: PRODUCT USED FOR UNKNOWN INDICATION
     Dosage: ^TABLETT^
     Route: 048

REACTIONS (3)
  - Chemical burn of oral cavity [Recovered/Resolved]
  - Chemical burn of respiratory tract [Recovered/Resolved]
  - Suspected product quality issue [Recovered/Resolved]

NARRATIVE: CASE EVENT DATE: 20190123
